FAERS Safety Report 6807379-1 (Version None)
Quarter: 2010Q2

REPORT INFORMATION
  Report Type: 
  Country: None (occurrence: None)
  Receive Date: 20100629
  Receipt Date: 20081027
  Transmission Date: 20101027
  Serious: Yes (Other)
  Sender: FDA-Public Use
  Company Number: US-PFIZER INC-2008077922

PATIENT
  Sex: Female
  Weight: 68.181 kg

DRUGS (3)
  1. XANAX [Suspect]
     Indication: NERVOUSNESS
     Dates: start: 19830101
  2. TRAZODONE HYDROCHLORIDE [Concomitant]
  3. DARVOCET [Concomitant]

REACTIONS (4)
  - DRUG HYPERSENSITIVITY [None]
  - DRUG INEFFECTIVE [None]
  - NERVOUSNESS [None]
  - PRURITUS [None]
